FAERS Safety Report 18789196 (Version 2)
Quarter: 2021Q1

REPORT INFORMATION
  Report Type: Spontaneous
  Country: DE (occurrence: DE)
  Receive Date: 20210126
  Receipt Date: 20210311
  Transmission Date: 20210419
  Serious: Yes (Life-Threatening, Other)
  Sender: FDA-Public Use
  Company Number: DE-PFIZER INC-2021023215

PATIENT
  Age: 60 Year

DRUGS (10)
  1. PREDNISONE. [Suspect]
     Active Substance: PREDNISONE
     Indication: LARGE GRANULAR LYMPHOCYTOSIS
     Dosage: CHOP CHEMOTHERAPY
     Route: 065
  2. METHOTREXATE SODIUM. [Suspect]
     Active Substance: METHOTREXATE SODIUM
     Indication: LARGE GRANULAR LYMPHOCYTOSIS
     Dosage: UNK
     Route: 065
  3. CYCLOPHOSPHAMIDE. [Suspect]
     Active Substance: CYCLOPHOSPHAMIDE
     Dosage: RIC CONDITIONING PROTOCOL
  4. VINCRISTINE [Suspect]
     Active Substance: VINCRISTINE
     Indication: LARGE GRANULAR LYMPHOCYTOSIS
     Dosage: CHOP CHEMOTHERAPY
     Route: 065
  5. FLUDARABINE [Suspect]
     Active Substance: FLUDARABINE PHOSPHATE
     Dosage: RIC CONDITIONING PROTOCOL
  6. CYCLOPHOSPHAMIDE. [Suspect]
     Active Substance: CYCLOPHOSPHAMIDE
     Dosage: UNK
     Route: 065
  7. FLUDARABINE [Suspect]
     Active Substance: FLUDARABINE PHOSPHATE
     Indication: LARGE GRANULAR LYMPHOCYTOSIS
     Dosage: RIC CONDITIONING PROTOCOL
     Route: 065
  8. CYCLOPHOSPHAMIDE. [Suspect]
     Active Substance: CYCLOPHOSPHAMIDE
     Indication: LARGE GRANULAR LYMPHOCYTOSIS
     Dosage: CHOP CHEMOTHERAPY
     Route: 065
  9. MABCAMPATH [Suspect]
     Active Substance: ALEMTUZUMAB
     Indication: LARGE GRANULAR LYMPHOCYTOSIS
     Dosage: UNK
     Dates: start: 201701, end: 201705
  10. DOXORUBICIN [Suspect]
     Active Substance: DOXORUBICIN
     Indication: LARGE GRANULAR LYMPHOCYTOSIS
     Dosage: CHOP CHEMOTHERAPY

REACTIONS (4)
  - Drug ineffective [Unknown]
  - Pancytopenia [Unknown]
  - Febrile neutropenia [Unknown]
  - Aspergillus infection [Unknown]
